FAERS Safety Report 6190788-4 (Version None)
Quarter: 2009Q2

REPORT INFORMATION
  Report Type: 
  Country: None (occurrence: None)
  Receive Date: 20090514
  Receipt Date: 20090505
  Transmission Date: 20091009
  Serious: Yes (Other)
  Sender: FDA-Public Use
  Company Number: FR-ELI_LILLY_AND_COMPANY-FR200903001929

PATIENT
  Age: 72 Year
  Sex: Female
  Weight: 58 kg

DRUGS (5)
  1. FORTEO [Suspect]
     Indication: OSTEOPOROTIC FRACTURE
     Dosage: 20 UG, DAILY (1/D)
     Route: 058
     Dates: start: 20080205
  2. PARIET [Concomitant]
     Indication: HIATUS HERNIA
     Dosage: UNK, UNKNOWN
     Route: 048
     Dates: start: 20080101
  3. OROCAL [Concomitant]
     Indication: OSTEOPOROSIS
     Dosage: 500 MG, DAILY (1/D)
     Route: 048
     Dates: start: 20000101
  4. PIASCLEDINE /00809501/ [Concomitant]
     Indication: OSTEOPOROSIS
     Dosage: UNK, UNKNOWN
     Route: 048
  5. ISKEDYL [Concomitant]
     Dosage: UNK, UNKNOWN
     Route: 048

REACTIONS (3)
  - BASOSQUAMOUS CARCINOMA OF SKIN [None]
  - HEADACHE [None]
  - VARICOSE VEIN [None]
